FAERS Safety Report 13143716 (Version 1)
Quarter: 2017Q1

REPORT INFORMATION
  Report Type: Spontaneous
  Country: US (occurrence: US)
  Receive Date: 20170124
  Receipt Date: 20170124
  Transmission Date: 20170428
  Serious: No
  Sender: FDA-Public Use
  Company Number: US-BAUSCH-BL-2016-016267

PATIENT
  Sex: Male

DRUGS (1)
  1. ALAWAY [Suspect]
     Active Substance: KETOTIFEN FUMARATE
     Indication: HYPERSENSITIVITY
     Route: 047

REACTIONS (1)
  - Eye irritation [Recovered/Resolved]
